FAERS Safety Report 10333274 (Version 1)
Quarter: 2014Q3

REPORT INFORMATION
  Report Type: Spontaneous
  Country: US (occurrence: US)
  Receive Date: 20140722
  Receipt Date: 20140722
  Transmission Date: 20150326
  Serious: No
  Sender: FDA-Public Use
  Company Number: US-PFIZER INC-2014201320

PATIENT
  Age: 72 Year
  Sex: Male
  Weight: 90.7 kg

DRUGS (3)
  1. LISINOPRIL. [Concomitant]
     Active Substance: LISINOPRIL
     Indication: HYPERTENSION
     Dosage: 10 MG, DAILY
  2. ATORVASTATIN CALCIUM. [Suspect]
     Active Substance: ATORVASTATIN CALCIUM
     Dosage: 40 MG, DAILY
  3. LIPITOR [Suspect]
     Active Substance: ATORVASTATIN CALCIUM
     Dosage: 40 MG, DAILY
     Dates: start: 199509

REACTIONS (4)
  - Myalgia [Unknown]
  - Pain in extremity [Unknown]
  - Gait disturbance [Unknown]
  - Muscle spasms [Unknown]

NARRATIVE: CASE EVENT DATE: 2013
